FAERS Safety Report 10172530 (Version 2)
Quarter: 2014Q2

REPORT INFORMATION
  Report Type: Spontaneous
  Country: US (occurrence: US)
  Receive Date: 20140515
  Receipt Date: 20140525
  Transmission Date: 20141212
  Serious: Yes (Hospitalization)
  Sender: FDA-Public Use
  Company Number: US-MERCK-1405USA005911

PATIENT
  Age: 54 Year
  Sex: Female

DRUGS (4)
  1. INVANZ [Suspect]
     Indication: SKIN ULCER
     Dosage: 1 G, QD
     Route: 042
     Dates: start: 20130711, end: 20130819
  2. INVANZ [Suspect]
     Indication: ENCEPHALITIS
     Dosage: UNK
     Dates: start: 20140411, end: 20140424
  3. INVANZ [Suspect]
     Dosage: UNK
     Dates: start: 20140411, end: 20140424
  4. DAPTOMYCIN [Concomitant]
     Indication: ENCEPHALITIS

REACTIONS (3)
  - Hallucination [Recovered/Resolved]
  - Confusional state [Recovered/Resolved]
  - Adverse event [Unknown]
